FAERS Safety Report 6770116-3 (Version None)
Quarter: 2010Q2

REPORT INFORMATION
  Report Type: 
  Country: None (occurrence: None)
  Receive Date: 20100615
  Receipt Date: 20100604
  Transmission Date: 20101027
  Serious: Yes (Other)
  Sender: FDA-Public Use
  Company Number: CY-PFIZER INC-2010070786

PATIENT
  Age: 51 Year
  Sex: Male

DRUGS (3)
  1. DOXYCYCLINE MONOHYDRATE [Suspect]
     Indication: RESPIRATORY TRACT INFECTION
     Route: 048
  2. AZITHROMYCIN [Suspect]
     Route: 048
  3. QUININE SULFATE [Suspect]
     Indication: RESPIRATORY TRACT INFECTION

REACTIONS (5)
  - ACTIVATED PARTIAL THROMBOPLASTIN TIME PROLONGED [None]
  - CONDITION AGGRAVATED [None]
  - DISSEMINATED INTRAVASCULAR COAGULATION [None]
  - PLATELET COUNT DECREASED [None]
  - PROTHROMBIN TIME PROLONGED [None]
